FAERS Safety Report 10196431 (Version 1)
Quarter: 2014Q2

REPORT INFORMATION
  Report Type: Spontaneous
  Country: US (occurrence: None)
  Receive Date: 20140522
  Receipt Date: 20140522
  Transmission Date: 20141212
  Serious: Yes (Other)
  Sender: FDA-Public Use
  Company Number: B0994216A

PATIENT
  Age: 49 Year
  Sex: Male

DRUGS (2)
  1. SALBUTAMOL SULPHATE NEBULISER SOLUTION [Suspect]
     Indication: CHRONIC OBSTRUCTIVE PULMONARY DISEASE
     Route: 055
  2. IPRATROPIUM BROMIDE [Concomitant]

REACTIONS (7)
  - Lactic acidosis [None]
  - Tachypnoea [None]
  - Pyrexia [None]
  - Productive cough [None]
  - Dyspnoea [None]
  - Chronic obstructive pulmonary disease [None]
  - Muscle fatigue [None]
